FAERS Safety Report 5075018-9 (Version None)
Quarter: 2006Q3

REPORT INFORMATION
  Report Type: 
  Country: None (occurrence: None)
  Receive Date: 20060717
  Receipt Date: 20060125
  Transmission Date: 20061208
  Serious: No
  Sender: FDA-Public Use
  Company Number: 2006000219

PATIENT
  Sex: Male

DRUGS (1)
  1. TARCEVA [Suspect]
     Dosage: SEE IMAGE
     Route: 048

REACTIONS (3)
  - BURNING SENSATION [None]
  - DIARRHOEA [None]
  - RASH [None]
